FAERS Safety Report 10969922 (Version 3)
Quarter: 2015Q2

REPORT INFORMATION
  Report Type: Spontaneous
  Country: US (occurrence: US)
  Receive Date: 20150331
  Receipt Date: 20150515
  Transmission Date: 20150821
  Serious: No
  Sender: FDA-Public Use
  Company Number: US-PFIZER INC-2015106856

PATIENT
  Age: 58 Year
  Sex: Female
  Weight: 47 kg

DRUGS (1)
  1. ADVIL [Suspect]
     Active Substance: IBUPROFEN
     Indication: BACK PAIN
     Dosage: UNK UNK, 1X/DAY (2-200MG)

REACTIONS (6)
  - Intentional product misuse [Unknown]
  - Dysgeusia [Recovered/Resolved]
  - Oral discomfort [Recovered/Resolved]
  - Product taste abnormal [Unknown]
  - Oral mucosal blistering [Unknown]
  - Visual impairment [Unknown]

NARRATIVE: CASE EVENT DATE: 201503
